FAERS Safety Report 24333618 (Version 1)
Quarter: 2024Q3

REPORT INFORMATION
  Report Type: Spontaneous
  Country: US (occurrence: None)
  Receive Date: 20240918
  Receipt Date: 20240918
  Transmission Date: 20241017
  Serious: Yes (Death)
  Sender: Public
  Company Number: None

PATIENT
  Age: 81 Year
  Sex: Male

DRUGS (2)
  1. SUNITINIB [Suspect]
     Active Substance: SUNITINIB
     Indication: Carcinoid tumour
     Dosage: OTHER FREQUENCY : QD CYCLE 147;?
  2. SUNITINIB [Suspect]
     Active Substance: SUNITINIB
     Indication: Benign neoplasm

REACTIONS (1)
  - Death [None]
